FAERS Safety Report 5324907-6 (Version None)
Quarter: 2007Q2

REPORT INFORMATION
  Report Type: 
  Country: None (occurrence: None)
  Receive Date: 20070515
  Receipt Date: 20070510
  Transmission Date: 20071010
  Serious: Yes (Other)
  Sender: FDA-Public Use
  Company Number: PHNU2007DE01768

PATIENT
  Age: 76 Year
  Sex: Female

DRUGS (3)
  1. FORADIL [Suspect]
     Indication: ASTHMA
     Dosage: UNKNOWN
     Dates: start: 20070301, end: 20070401
  2. MIFLONIDE [Concomitant]
     Indication: ASTHMA
     Dosage: UNKNOWN
  3. AMITRIPTYLINE HCL [Concomitant]
     Dosage: UNKNOWN
     Route: 065

REACTIONS (1)
  - ANOSMIA [None]
